FAERS Safety Report 23433007 (Version 1)
Quarter: 2024Q1

REPORT INFORMATION
  Report Type: Spontaneous
  Country: US (occurrence: US)
  Receive Date: 20240123
  Receipt Date: 20240123
  Transmission Date: 20240410
  Serious: No
  Sender: FDA-Public Use
  Company Number: US-BAYER-2024A010749

PATIENT
  Age: 54 Year
  Sex: Female

DRUGS (1)
  1. ADEMPAS [Suspect]
     Active Substance: RIOCIGUAT
     Indication: Pulmonary arterial hypertension
     Dosage: 1.5 MG, TID
     Route: 048
     Dates: start: 20221125

REACTIONS (6)
  - Fatigue [None]
  - Pyrexia [None]
  - Dysphonia [None]
  - Sinus congestion [None]
  - Oropharyngeal pain [None]
  - Feeling abnormal [None]

NARRATIVE: CASE EVENT DATE: 20240109
